FAERS Safety Report 8800749 (Version 1)
Quarter: 2012Q4

REPORT INFORMATION
  Report Type: 
  Country: US (occurrence: US)
  Receive Date: 20120921
  Receipt Date: 20120921
  Transmission Date: 20130627
  Serious: No
  Sender: FDA-Public Use
  Company Number: US-009507513-2012SP035677

PATIENT

DRUGS (1)
  1. ASMANEX TWISTHALER [Suspect]
     Route: 055

REACTIONS (3)
  - Drug dose omission [Unknown]
  - Medical device complication [Unknown]
  - No adverse event [Unknown]
